FAERS Safety Report 13874371 (Version 1)
Quarter: 2017Q3

REPORT INFORMATION
  Report Type: Spontaneous
  Country: US (occurrence: US)
  Receive Date: 20170816
  Receipt Date: 20170816
  Transmission Date: 20171127
  Serious: No
  Sender: FDA-Public Use
  Company Number: US-ROCHE-1060033

PATIENT
  Age: 80 Year
  Sex: Female

DRUGS (1)
  1. LUCENTIS [Suspect]
     Active Substance: RANIBIZUMAB
     Indication: PRODUCT USED FOR UNKNOWN INDICATION
     Route: 065

REACTIONS (11)
  - Fatigue [Unknown]
  - Influenza like illness [Unknown]
  - Vulvovaginal erythema [Unknown]
  - Bedridden [Unknown]
  - Urinary tract infection [Unknown]
  - Constipation [Unknown]
  - Vulvovaginal pain [Unknown]
  - Nasopharyngitis [Unknown]
  - Gravitational oedema [Unknown]
  - Decreased appetite [Unknown]
  - Asthenia [Unknown]
